FAERS Safety Report 15114444 (Version 6)
Quarter: 2018Q3

REPORT INFORMATION
  Report Type: Report from Study
  Country: None (occurrence: BE)
  Receive Date: 20180706
  Receipt Date: 20180803
  Transmission Date: 20181010
  Serious: Yes (Hospitalization, Other)
  Sender: FDA-Public Use
  Company Number: BE-ABBVIE-17K-013-2159163-00

PATIENT
  Age: 72 Year
  Sex: Male

DRUGS (30)
  1. DUODOPA [Suspect]
     Active Substance: CARBIDOPA\LEVODOPA
     Dosage: MD= 3.4ML; CD=1.8ML TILL 6PM/2,8ML (BETWEEN 6PM AND 7PM)/H DURING 16H; ED=1.8ML
     Route: 050
     Dates: start: 20160310, end: 20171102
  2. DUODOPA [Suspect]
     Active Substance: CARBIDOPA\LEVODOPA
     Dosage: MD=2.4ML CD=1.6ML/HR DURING 16HRS ED=1.8ML
     Route: 050
     Dates: start: 20180523, end: 20180626
  3. DUODOPA [Suspect]
     Active Substance: CARBIDOPA\LEVODOPA
     Dosage: MD=2.4ML CD=1.3ML/HR DURING 16HRS ED=1ML
     Route: 050
     Dates: start: 20180626, end: 20180703
  4. TEMESTA [Concomitant]
     Indication: PRODUCT USED FOR UNKNOWN INDICATION
  5. TEMESTA [Concomitant]
  6. TRAZODONE [Concomitant]
     Active Substance: TRAZODONE HYDROCHLORIDE
  7. CLOPIDOGREL [Concomitant]
     Active Substance: CLOPIDOGREL BISULFATE
     Indication: PRODUCT USED FOR UNKNOWN INDICATION
  8. XADAGO [Concomitant]
     Active Substance: SAFINAMIDE MESYLATE
  9. DEANXIT [Concomitant]
     Active Substance: FLUPENTIXOL DIHYDROCHLORIDE\MELITRACEN HYDROCHLORIDE
     Indication: PRODUCT USED FOR UNKNOWN INDICATION
  10. NOBITEN [Concomitant]
     Active Substance: NEBIVOLOL
     Indication: PRODUCT USED FOR UNKNOWN INDICATION
  11. DUODOPA [Suspect]
     Active Substance: CARBIDOPA\LEVODOPA
     Dosage: MD=2.4ML?CD=1.9ML/HR DURING 16HRS?ED=1ML
     Route: 050
     Dates: start: 20180721
  12. PANTOMED [Concomitant]
     Indication: PRODUCT USED FOR UNKNOWN INDICATION
  13. DEANXIT [Concomitant]
     Active Substance: FLUPENTIXOL DIHYDROCHLORIDE\MELITRACEN HYDROCHLORIDE
  14. NOBITEN [Concomitant]
     Active Substance: NEBIVOLOL
  15. CYMBALTA [Concomitant]
     Active Substance: DULOXETINE HYDROCHLORIDE
     Indication: PRODUCT USED FOR UNKNOWN INDICATION
  16. PROLOPA HBS [Concomitant]
     Active Substance: BENSERAZIDE\LEVODOPA
  17. DUODOPA [Suspect]
     Active Substance: CARBIDOPA\LEVODOPA
     Indication: PARKINSON^S DISEASE
     Dosage: MD=5.3 ML; CD=1.9 ML/H DURING 16H; ED= 1.8ML
     Route: 050
     Dates: start: 20140902, end: 20140904
  18. DUODOPA [Suspect]
     Active Substance: CARBIDOPA\LEVODOPA
     Dosage: MD=3.4ML?CD=1.8 (AM) ? BETWEEN 2.8 AND 5 (PM) ML/HR DURING 16HRS?ED=BETWEEN 1.8 AND 4ML
     Route: 050
     Dates: start: 20180228
  19. AZILECT [Concomitant]
     Active Substance: RASAGILINE MESYLATE
     Indication: PRODUCT USED FOR UNKNOWN INDICATION
  20. TRAZODONE [Concomitant]
     Active Substance: TRAZODONE HYDROCHLORIDE
     Indication: PRODUCT USED FOR UNKNOWN INDICATION
  21. DUODOPA [Suspect]
     Active Substance: CARBIDOPA\LEVODOPA
     Dosage: MD=2.4ML CD= BETWEEN 1.5 AND 3 ML/HR DURING 16HRS ED=BETWEEN 1 AND 2ML
     Route: 050
     Dates: start: 20180703, end: 20180721
  22. CYMBALTA [Concomitant]
     Active Substance: DULOXETINE HYDROCHLORIDE
  23. DUODOPA [Suspect]
     Active Substance: CARBIDOPA\LEVODOPA
     Dosage: DOSES CONTINUOUSLY MONITORRED AND ADAPTED
     Route: 050
     Dates: start: 20140904, end: 20160310
  24. DUODOPA [Suspect]
     Active Substance: CARBIDOPA\LEVODOPA
     Dosage: MD=3.4ML CD=1.8 ML BETWEEN 2.8  TO  5 ML FROM 6PM/H DURING 16H ED=BETWEEN 1.8 ML TO  4 ML
     Route: 050
     Dates: start: 20171102, end: 20180228
  25. ALPRAZOLAM. [Concomitant]
     Active Substance: ALPRAZOLAM
     Indication: PRODUCT USED FOR UNKNOWN INDICATION
  26. ALPRAZOLAM. [Concomitant]
     Active Substance: ALPRAZOLAM
  27. PANTOMED [Concomitant]
  28. PROLOPA HBS [Concomitant]
     Active Substance: BENSERAZIDE\LEVODOPA
     Indication: PRODUCT USED FOR UNKNOWN INDICATION
  29. XADAGO [Concomitant]
     Active Substance: SAFINAMIDE MESYLATE
     Indication: PRODUCT USED FOR UNKNOWN INDICATION
  30. AZILECT [Concomitant]
     Active Substance: RASAGILINE MESYLATE

REACTIONS (12)
  - Weight decreased [Unknown]
  - Constipation [Unknown]
  - Drug ineffective [Unknown]
  - Sepsis [Recovered/Resolved]
  - Mood altered [Unknown]
  - Fall [Not Recovered/Not Resolved]
  - Freezing phenomenon [Not Recovered/Not Resolved]
  - Amnesia [Not Recovered/Not Resolved]
  - Hyperhidrosis [Unknown]
  - General physical health deterioration [Not Recovered/Not Resolved]
  - Dysuria [Unknown]
  - Dyskinesia [Unknown]

NARRATIVE: CASE EVENT DATE: 2018
